FAERS Safety Report 6149093-4 (Version None)
Quarter: 2009Q2

REPORT INFORMATION
  Report Type: 
  Country: None (occurrence: None)
  Receive Date: 20090409
  Receipt Date: 20090330
  Transmission Date: 20091009
  Serious: Yes (Hospitalization)
  Sender: FDA-Public Use
  Company Number: PHHY2009NO11995

PATIENT
  Sex: Male

DRUGS (2)
  1. VOLTAREN [Suspect]
     Indication: BACK PAIN
     Dosage: 50 MG, 4-5 TABS/ 2-3DAYS, 3-4 TIMES A DAY
     Dates: start: 20090101
  2. IBUMETIN [Suspect]
     Indication: PAIN
     Dosage: 400 MG,2-4 TABS ONCE A MONTH
     Dates: start: 20090101

REACTIONS (4)
  - ABDOMINAL PAIN UPPER [None]
  - CHOLESTASIS [None]
  - CHROMATURIA [None]
  - JAUNDICE [None]
